FAERS Safety Report 23949799 (Version 1)
Quarter: 2024Q2

REPORT INFORMATION
  Report Type: Spontaneous
  Country: US (occurrence: None)
  Receive Date: 20240606
  Receipt Date: 20240606
  Transmission Date: 20240716
  Serious: Yes (Other)
  Sender: FDA-Public Use
  Company Number: None

PATIENT
  Age: 75 Year
  Sex: Male
  Weight: 114.75 kg

DRUGS (10)
  1. DOXYCYCLINE [Suspect]
     Active Substance: DOXYCYCLINE\DOXYCYCLINE HYCLATE
     Indication: Rosacea
     Dosage: OTHER QUANTITY : 1 TABLET(S);?FREQUENCY : DAILY;?
     Route: 048
     Dates: start: 20210401, end: 20230401
  2. ATORVASTATIN [Concomitant]
  3. ELIQUIS [Concomitant]
  4. LOSARTIN [Concomitant]
  5. B complex [Concomitant]
  6. NIACIN [Concomitant]
  7. PROSTATE COMPLEX [Concomitant]
  8. aspirin [Concomitant]
  9. VITAMIN D [Concomitant]
     Active Substance: VITAMIN D NOS
  10. COENZYME Q10 [Concomitant]
     Active Substance: DIETARY SUPPLEMENT\UBIDECARENONE

REACTIONS (5)
  - Bone swelling [None]
  - Osteitis [None]
  - Peripheral swelling [None]
  - Epidermolysis bullosa [None]
  - Inflammation [None]

NARRATIVE: CASE EVENT DATE: 20220801
